FAERS Safety Report 6610887-X (Version None)
Quarter: 2010Q1

REPORT INFORMATION
  Report Type: 
  Country: None (occurrence: None)
  Receive Date: 20100302
  Receipt Date: 20100215
  Transmission Date: 20100710
  Serious: No
  Sender: FDA-Public Use
  Company Number: US-ABBOTT-10P-163-0627561-00

PATIENT
  Sex: Female

DRUGS (1)
  1. VALPROIC ACID SYRUP [Suspect]
     Indication: DRUG USE FOR UNKNOWN INDICATION
     Route: 048

REACTIONS (2)
  - DRUG ADMINISTRATION ERROR [None]
  - DYSPEPSIA [None]
